FAERS Safety Report 9728489 (Version 1)
Quarter: 2013Q4

REPORT INFORMATION
  Report Type: Spontaneous
  Country: ZA (occurrence: ZA)
  Receive Date: 20131204
  Receipt Date: 20131204
  Transmission Date: 20140711
  Serious: Yes (Other)
  Sender: FDA-Public Use
  Company Number: ZA-PFIZER INC-2013341676

PATIENT
  Age: 75 Year
  Sex: Female

DRUGS (2)
  1. CELEBREX [Suspect]
     Dosage: ONCE DAILY DOSE AT NIGHT
     Route: 048
  2. LYRICA [Suspect]
     Dosage: ONCE DAILY AT NIGHT
     Route: 048

REACTIONS (2)
  - Macular degeneration [Unknown]
  - Vision blurred [Unknown]
